FAERS Safety Report 23747983 (Version 1)
Quarter: 2024Q2

REPORT INFORMATION
  Report Type: Spontaneous
  Country: US (occurrence: None)
  Receive Date: 20240416
  Receipt Date: 20240416
  Transmission Date: 20240716
  Serious: No
  Sender: FDA-Public Use
  Company Number: None

PATIENT
  Sex: Female

DRUGS (3)
  1. LENALIDOMIDE [Suspect]
     Active Substance: LENALIDOMIDE
     Indication: Follicular lymphoma
     Dosage: FREQUENCY: TAKE 1 CAPSULE BY MOUTH L TIME A DAY FOR 21DAYS ON THEN 7 DAYS OFF.?
     Route: 048
     Dates: start: 202403
  2. REVLIMID [Concomitant]
     Active Substance: LENALIDOMIDE
  3. ENTECAVIR [Concomitant]

REACTIONS (1)
  - Pyrexia [None]
